FAERS Safety Report 15414667 (Version 15)
Quarter: 2021Q3

REPORT INFORMATION
  Report Type: Spontaneous
  Country: DE (occurrence: DE)
  Receive Date: 20180921
  Receipt Date: 20210722
  Transmission Date: 20211014
  Serious: Yes (Death, Hospitalization, Other)
  Sender: FDA-Public Use
  Company Number: PHHY2018DE101439

PATIENT
  Age: 77 Year
  Sex: Male
  Weight: 76 kg

DRUGS (25)
  1. AZOPT [Concomitant]
     Active Substance: BRINZOLAMIDE
     Indication: PRODUCT USED FOR UNKNOWN INDICATION
     Dosage: 10 MG/ML, (1 EVERY 15 MINUTES)
     Route: 065
  2. PANTOPRAZOL HEXAL [Concomitant]
     Active Substance: PANTOPRAZOLE
     Indication: PRODUCT USED FOR UNKNOWN INDICATION
     Dosage: 40 MG, QD (0?0?1?0)
     Route: 065
  3. METOHEXAL SUCC [Concomitant]
     Active Substance: METOPROLOL SUCCINATE
     Indication: PRODUCT USED FOR UNKNOWN INDICATION
     Dosage: 47.5 MG, BID (1?0?1?0)
     Route: 065
  4. INSULIN HUMAN ISOPHANE [Concomitant]
     Active Substance: INSULIN HUMAN
     Indication: PRODUCT USED FOR UNKNOWN INDICATION
     Dosage: UNK, BID (UNK (15?0?0?15)
     Route: 058
  5. DEXA ^CT?ARZNEIMITTEL^ [Concomitant]
     Indication: PRODUCT USED FOR UNKNOWN INDICATION
     Dosage: 4 MG, TID (1?1?1?0)
     Route: 065
     Dates: start: 20190128
  6. VALSARTAN. [Suspect]
     Active Substance: VALSARTAN
     Indication: HYPERTENSION
     Dosage: 80 (UNITS NOT SPECIFIED)
     Route: 048
  7. METOPROLOL. [Concomitant]
     Active Substance: METOPROLOL
     Indication: PRODUCT USED FOR UNKNOWN INDICATION
     Dosage: 100 MG, QD
     Route: 048
     Dates: start: 2000
  8. BRINZOLAMIDE [Concomitant]
     Active Substance: BRINZOLAMIDE
     Indication: PRODUCT USED FOR UNKNOWN INDICATION
     Dosage: UNK, BID
     Route: 065
  9. PROTAPHANE [Concomitant]
     Active Substance: INSULIN HUMAN
     Indication: BLOOD GLUCOSE ABNORMAL
     Dosage: 100 IE/ML (15 IE AT 6 AM AND AT 10 PM)
     Route: 065
     Dates: start: 200103
  10. PARACETAMOL RATIOPHARM [Concomitant]
     Active Substance: ACETAMINOPHEN
     Indication: PRODUCT USED FOR UNKNOWN INDICATION
     Dosage: 500 MG, (1?2 TABLETS UP TO 4 TIMES PER DAY)
     Route: 065
  11. MCP AL [Concomitant]
     Indication: PRODUCT USED FOR UNKNOWN INDICATION
     Dosage: 10 MG, TID (1?1?1?0))
     Route: 065
  12. METOPROLOL. [Concomitant]
     Active Substance: METOPROLOL
     Dosage: 0.5 DF, BID (100 MG (??0??))
     Route: 048
  13. TORASEMIDE [Concomitant]
     Active Substance: TORSEMIDE
     Indication: PRODUCT USED FOR UNKNOWN INDICATION
     Dosage: 0.5 DF, QD (??0?0)
     Route: 065
     Dates: start: 201802
  14. ACTRAPID [Concomitant]
     Active Substance: INSULIN HUMAN
     Indication: BLOOD GLUCOSE ABNORMAL
     Dosage: 100 IE/ML, (8 IE?0, IE?10, IE?0 IE)
     Route: 065
     Dates: start: 201512
  15. TORASEMID HEXAL [Concomitant]
     Active Substance: TORSEMIDE
     Indication: PRODUCT USED FOR UNKNOWN INDICATION
     Dosage: 5 MG, QD (1?0?0?0)
     Route: 065
  16. NOVAMINSULFON?RATIOPHARM [Concomitant]
     Active Substance: METAMIZOLE
     Indication: PRODUCT USED FOR UNKNOWN INDICATION
     Dosage: 40 DRP, QID
     Route: 065
  17. VALSARTAN AND HYDROCHLOROTHIAZIDE [Concomitant]
     Active Substance: HYDROCHLOROTHIAZIDE\VALSARTAN
     Indication: HYPERTENSION
     Dosage: 0.5 DF, QD (??0?0)
     Route: 058
  18. VALSARTAN 1A PHARMA PLUS [Suspect]
     Active Substance: HYDROCHLOROTHIAZIDE\VALSARTAN
     Indication: HYPERTENSION
     Dosage: UNK
     Route: 065
     Dates: start: 20120216
  19. VALSARTAN PUREN [Concomitant]
     Active Substance: VALSARTAN
     Indication: PRODUCT USED FOR UNKNOWN INDICATION
     Dosage: 2 DF, QD (2?0?0?0)
     Route: 065
  20. TOREM [Concomitant]
     Active Substance: TORSEMIDE
     Indication: PRODUCT USED FOR UNKNOWN INDICATION
     Dosage: 5 MG, QD
     Route: 065
  21. INSULIN HUMAN [Concomitant]
     Active Substance: INSULIN HUMAN
     Indication: PRODUCT USED FOR UNKNOWN INDICATION
     Dosage: UNK, BID (8?0?10)
     Route: 065
  22. DICLOFENAC RATIOPHARM [Concomitant]
     Active Substance: DICLOFENAC
     Indication: PRODUCT USED FOR UNKNOWN INDICATION
     Dosage: 50 MG, QID (MAX. 4TIME DAILY)
     Route: 065
  23. VALSARTAN HEXAL COMP [Suspect]
     Active Substance: HYDROCHLOROTHIAZIDE\VALSARTAN
     Indication: PRODUCT USED FOR UNKNOWN INDICATION
     Dosage: UNK (VALSARTAN 160/ HYDROCHLOROTHIAZIDE12.5)
     Route: 065
     Dates: start: 20120712, end: 20180727
  24. HCT HEXAL [Concomitant]
     Active Substance: HYDROCHLOROTHIAZIDE
     Indication: PRODUCT USED FOR UNKNOWN INDICATION
     Dosage: 12.5 MG, QD (1?0?0?0)
     Route: 065
  25. GILOTRIF [Concomitant]
     Active Substance: AFATINIB
     Indication: PRODUCT USED FOR UNKNOWN INDICATION
     Dosage: 20 MG, QOD
     Route: 065

REACTIONS (19)
  - Malignant pleural effusion [Fatal]
  - General physical health deterioration [Fatal]
  - Pleural effusion [Fatal]
  - Metastases to central nervous system [Unknown]
  - Balance disorder [Unknown]
  - Aspiration pleural cavity [Fatal]
  - Dyspnoea exertional [Fatal]
  - Cardiac aneurysm [Unknown]
  - Ventricular hypokinesia [Unknown]
  - Asthenia [Fatal]
  - Malignant neoplasm of pleura [Fatal]
  - Dyspnoea [Fatal]
  - Effusion [Fatal]
  - Pneumothorax [Unknown]
  - Chilaiditi^s syndrome [Unknown]
  - Feeling abnormal [Unknown]
  - Bronchial carcinoma [Fatal]
  - Breath sounds abnormal [Fatal]
  - Left ventricular dysfunction [Unknown]

NARRATIVE: CASE EVENT DATE: 2018
